FAERS Safety Report 17231931 (Version 1)
Quarter: 2020Q1

REPORT INFORMATION
  Report Type: Spontaneous
  Country: US (occurrence: US)
  Receive Date: 20200103
  Receipt Date: 20200103
  Transmission Date: 20200409
  Serious: No
  Sender: FDA-Public Use
  Company Number: US-BRECKENRIDGE PHARMACEUTICAL, INC.-2078489

PATIENT
  Sex: Male

DRUGS (1)
  1. ALPRAZOLAM. [Suspect]
     Active Substance: ALPRAZOLAM

REACTIONS (2)
  - Insomnia [None]
  - Hallucination [None]
